FAERS Safety Report 12367424 (Version 1)
Quarter: 2016Q2

REPORT INFORMATION
  Report Type: Spontaneous
  Country: None (occurrence: None)
  Receive Date: 20160513
  Receipt Date: 20160513
  Transmission Date: 20160815
  Serious: No
  Sender: FDA-Public Use
  Company Number: US-BRAINTREE LABORATORIES-150423

PATIENT
  Age: 60 Year
  Sex: Male
  Weight: 72.57 kg

DRUGS (1)
  1. NULYTELY [Suspect]
     Active Substance: POLYETHYLENE GLYCOL 3350\POTASSIUM CHLORIDE\SODIUM BICARBONATE\SODIUM CHLORIDE
     Indication: COLONOSCOPY
     Dosage: UNK
     Route: 048

REACTIONS (5)
  - Syncope [None]
  - Depressed mood [None]
  - Dizziness [None]
  - Hyperhidrosis [None]
  - Pallor [None]
